FAERS Safety Report 26213833 (Version 1)
Quarter: 2025Q4

REPORT INFORMATION
  Report Type: Spontaneous
  Country: US (occurrence: US)
  Receive Date: 20251230
  Receipt Date: 20251230
  Transmission Date: 20260117
  Serious: Yes (Death, Other)
  Sender: AMGEN
  Company Number: US-AMGEN-USASP2025256024

PATIENT

DRUGS (14)
  1. BLINATUMOMAB [Suspect]
     Active Substance: BLINATUMOMAB
     Indication: Acute lymphocytic leukaemia
     Dosage: UNK [FOUR CYCLES, GIVEN FOR 4 WEEKS ON, 2 WEEKS OFF]
     Route: 065
  2. BLINATUMOMAB [Suspect]
     Active Substance: BLINATUMOMAB
     Indication: Philadelphia chromosome positive
  3. PREDNISONE [Suspect]
     Active Substance: PREDNISONE
     Indication: Acute lymphocytic leukaemia
     Dosage: 2 MILLIGRAM/KILOGRAM [MAX OF 120MG DAILY ON D1-21]
     Route: 065
  4. PREDNISONE [Suspect]
     Active Substance: PREDNISONE
     Indication: Philadelphia chromosome positive
     Dosage: UNK [TAPERED OFF BY D28]
     Route: 065
  5. RITUXIMAB [Suspect]
     Active Substance: RITUXIMAB
     Indication: Acute lymphocytic leukaemia
     Dosage: UNK
     Route: 065
  6. RITUXIMAB [Suspect]
     Active Substance: RITUXIMAB
     Indication: Philadelphia chromosome positive
  7. VENETOCLAX [Suspect]
     Active Substance: VENETOCLAX
     Indication: Acute lymphocytic leukaemia
     Dosage: 100 MILLIGRAM, QD [DAY (D) 1-28]
     Route: 065
  8. VENETOCLAX [Suspect]
     Active Substance: VENETOCLAX
     Indication: Philadelphia chromosome positive
     Dosage: 200 MILLIGRAM, QD [DAY (D) 1-28]
     Route: 065
  9. VENETOCLAX [Suspect]
     Active Substance: VENETOCLAX
     Dosage: 400 MILLIGRAM, QD [D1-21 OF A 28D CYCLE]
     Route: 065
  10. VENETOCLAX [Suspect]
     Active Substance: VENETOCLAX
     Dosage: 400 MILLIGRAM, QD [D1-28]
     Route: 065
  11. DASATINIB [Suspect]
     Active Substance: DASATINIB
     Indication: Acute lymphocytic leukaemia
     Dosage: 140MG DAILY (100MG IF }/=60 YRS)
     Route: 065
  12. DASATINIB [Suspect]
     Active Substance: DASATINIB
     Indication: Philadelphia chromosome positive
  13. METHOTREXATE [Concomitant]
     Active Substance: METHOTREXATE
     Indication: Acute lymphocytic leukaemia
     Dosage: UNK (X 12)
     Route: 029
  14. METHOTREXATE [Concomitant]
     Active Substance: METHOTREXATE
     Indication: Philadelphia chromosome positive

REACTIONS (9)
  - Complications of bone marrow transplant [Fatal]
  - Pneumonia [Fatal]
  - Haematotoxicity [Unknown]
  - Hypoxia [Unknown]
  - Headache [Unknown]
  - Febrile neutropenia [Unknown]
  - Dyspnoea [Unknown]
  - Tumour lysis syndrome [Unknown]
  - Subdural haemorrhage [Unknown]
